FAERS Safety Report 15882064 (Version 2)
Quarter: 2019Q1

REPORT INFORMATION
  Report Type: Report from Study
  Country: US (occurrence: US)
  Receive Date: 20190128
  Receipt Date: 20190221
  Transmission Date: 20190417
  Serious: Yes (Death, Hospitalization)
  Sender: FDA-Public Use
  Company Number: US-ACTELION-A-US2018-183845

PATIENT
  Age: 65 Year
  Sex: Male
  Weight: 92.97 kg

DRUGS (7)
  1. LASIX [Concomitant]
     Active Substance: FUROSEMIDE
     Dosage: UNK UNK
     Route: 042
     Dates: start: 201812
  2. TRACLEER [Suspect]
     Active Substance: BOSENTAN
     Indication: PULMONARY ARTERIAL HYPERTENSION
     Dosage: 62.5 MG, BID
     Route: 048
     Dates: start: 201809, end: 201811
  3. OPSUMIT [Suspect]
     Active Substance: MACITENTAN
     Indication: PULMONARY ARTERIAL HYPERTENSION
     Dosage: UNK MG, QD
     Route: 048
     Dates: start: 201811, end: 201811
  4. OXYGEN. [Concomitant]
     Active Substance: OXYGEN
     Dosage: 15 L, UNK
     Dates: start: 201812
  5. TRACLEER [Suspect]
     Active Substance: BOSENTAN
     Dosage: 62.5 MG, BID
     Route: 048
     Dates: start: 201812
  6. OXYGEN. [Concomitant]
     Active Substance: OXYGEN
     Dosage: 5 L, UNK
  7. LASIX [Concomitant]
     Active Substance: FUROSEMIDE
     Dosage: 40 MG, BID
     Dates: start: 2014

REACTIONS (8)
  - Dyspnoea [Recovering/Resolving]
  - Pulmonary oedema [Not Recovered/Not Resolved]
  - Fluid retention [Not Recovered/Not Resolved]
  - Death [Fatal]
  - Pulmonary arterial hypertension [Not Recovered/Not Resolved]
  - Disease progression [Not Recovered/Not Resolved]
  - Swelling [Not Recovered/Not Resolved]
  - Aspiration pleural cavity [Unknown]

NARRATIVE: CASE EVENT DATE: 201811
